FAERS Safety Report 18931803 (Version 1)
Quarter: 2021Q1

REPORT INFORMATION
  Report Type: Spontaneous
  Country: US (occurrence: US)
  Receive Date: 20210223
  Receipt Date: 20210223
  Transmission Date: 20210420
  Serious: No
  Sender: FDA-Public Use
  Company Number: US-IGSA-BIG0011870

PATIENT
  Sex: Male
  Weight: 79 kg

DRUGS (18)
  1. METFORMIN HCL [Concomitant]
     Active Substance: METFORMIN HYDROCHLORIDE
  2. LYRICA [Concomitant]
     Active Substance: PREGABALIN
  3. PROLASTIN?C LIQUID [Suspect]
     Active Substance: .ALPHA.1-PROTEINASE INHIBITOR HUMAN
     Indication: ALPHA-1 ANTITRYPSIN DEFICIENCY
     Dosage: 4740 MILLIGRAM, Q.WK.
     Route: 042
     Dates: start: 20190717
  4. SPIRIVA [Concomitant]
     Active Substance: TIOTROPIUM BROMIDE MONOHYDRATE
  5. NOVOLOG [Concomitant]
     Active Substance: INSULIN ASPART
  6. MOBIC [Concomitant]
     Active Substance: MELOXICAM
  7. ALBUTEROL                          /00139501/ [Concomitant]
     Active Substance: ALBUTEROL
  8. ZOCOR [Concomitant]
     Active Substance: SIMVASTATIN
  9. NEXIUM [Concomitant]
     Active Substance: ESOMEPRAZOLE MAGNESIUM
  10. LEVITRA [Concomitant]
     Active Substance: VARDENAFIL HYDROCHLORIDE
  11. VENTOLIN [Concomitant]
     Active Substance: ALBUTEROL SULFATE
  12. TAMSULOSIN [Concomitant]
     Active Substance: TAMSULOSIN
  13. LEVEMIR [Concomitant]
     Active Substance: INSULIN DETEMIR
  14. HYDROXYZINE [Concomitant]
     Active Substance: HYDROXYZINE HYDROCHLORIDE
  15. HUMULIN N [Concomitant]
     Active Substance: INSULIN HUMAN
  16. GABAPENTIN. [Concomitant]
     Active Substance: GABAPENTIN
  17. NASONEX [Concomitant]
     Active Substance: MOMETASONE FUROATE
  18. AMLODIPINE BESILATE [Concomitant]
     Active Substance: AMLODIPINE BESYLATE

REACTIONS (2)
  - Influenza like illness [Recovering/Resolving]
  - Pyrexia [Recovering/Resolving]

NARRATIVE: CASE EVENT DATE: 2019
